FAERS Safety Report 9133357 (Version 3)
Quarter: 2013Q4

REPORT INFORMATION
  Report Type: Spontaneous
  Country: US (occurrence: US)
  Receive Date: 20130301
  Receipt Date: 20131025
  Transmission Date: 20140711
  Serious: No
  Sender: FDA-Public Use
  Company Number: US-PFIZER INC-2013072378

PATIENT
  Age: 67 Year
  Sex: Male
  Weight: 131.52 kg

DRUGS (4)
  1. GABAPENTIN [Suspect]
     Indication: PAROSMIA
     Dosage: 300 MG, 2X/DAY
     Route: 048
     Dates: start: 20130205, end: 20130206
  2. OXYCODONE HYDROCHLORIDE [Concomitant]
     Indication: PAIN
     Dosage: ^10/325^ MG, 4X/DAY
  3. DIAZEPAM [Concomitant]
     Dosage: UNK, AS NEEDED
  4. AMITRIPTYLINE [Concomitant]
     Indication: DEPRESSION
     Dosage: UNK
     Dates: start: 2001

REACTIONS (2)
  - Off label use [Unknown]
  - Drug ineffective for unapproved indication [Unknown]
